FAERS Safety Report 9813028 (Version 1)
Quarter: 2014Q1

REPORT INFORMATION
  Report Type: Spontaneous
  Country: JP (occurrence: JP)
  Receive Date: 20140113
  Receipt Date: 20140113
  Transmission Date: 20141002
  Serious: Yes (Hospitalization)
  Sender: FDA-Public Use
  Company Number: JP-ASTELLAS-2014JP000256

PATIENT
  Age: 70 Year
  Sex: Male

DRUGS (18)
  1. GRACEPTOR [Suspect]
     Indication: RENAL TRANSPLANT
     Dosage: 2 MG, UNKNOWN/D
     Route: 048
  2. CELECOX [Suspect]
     Dosage: UNK
     Route: 048
  3. HARNAL [Concomitant]
     Dosage: UNK
     Route: 048
  4. BIOFERMIN                          /01617201/ [Concomitant]
     Dosage: UNK
     Route: 048
  5. PARIET [Concomitant]
     Dosage: UNK
     Route: 048
  6. PROMAC                             /01312301/ [Concomitant]
     Dosage: UNK
     Route: 048
  7. CELLCEPT                           /01275102/ [Concomitant]
     Dosage: UNK
     Route: 048
  8. EBRANTIL                           /00631801/ [Concomitant]
     Dosage: UNK
     Route: 048
  9. AZILSARTAN [Concomitant]
     Dosage: UNK
     Route: 048
  10. CALBLOCK [Concomitant]
     Dosage: UNK
     Route: 048
  11. ARTIST [Concomitant]
     Dosage: UNK
     Route: 048
  12. MEDROL                             /00049601/ [Concomitant]
     Dosage: UNK
     Route: 048
  13. AMOBAN [Concomitant]
     Dosage: UNK
     Route: 048
  14. MUCOSTA [Concomitant]
     Dosage: UNK
     Route: 065
  15. LYRICA [Concomitant]
     Dosage: UNK
     Route: 048
  16. NEUROTROPIN                        /06251301/ [Concomitant]
     Dosage: UNK
     Route: 065
  17. LIMAPROST ALFADEX [Concomitant]
     Dosage: UNK
     Route: 048
  18. RHYTHMY [Concomitant]
     Dosage: UNK
     Route: 048

REACTIONS (4)
  - Large intestinal haemorrhage [Recovering/Resolving]
  - Amoebic dysentery [Recovering/Resolving]
  - Dyspepsia [Recovering/Resolving]
  - Amoebic dysentery [Recovering/Resolving]
